FAERS Safety Report 7489347-2 (Version None)
Quarter: 2011Q2

REPORT INFORMATION
  Report Type: 
  Country: None (occurrence: None)
  Receive Date: 20110518
  Receipt Date: 20110513
  Transmission Date: 20111010
  Serious: Yes (Hospitalization, Other)
  Sender: FDA-Public Use
  Company Number: VE-PFIZER INC-2011064413

PATIENT
  Age: 69 Year
  Sex: Male

DRUGS (1)
  1. ZOLOFT [Suspect]
     Dosage: 50 MG, 1X/DAY
     Route: 048
     Dates: start: 20110201

REACTIONS (2)
  - BACK PAIN [None]
  - PNEUMONIA [None]
